FAERS Safety Report 5871230-7 (Version None)
Quarter: 2008Q3

REPORT INFORMATION
  Report Type: 
  Country: None (occurrence: None)
  Receive Date: 20080902
  Receipt Date: 20080815
  Transmission Date: 20090109
  Serious: Yes (Hospitalization)
  Sender: FDA-Public Use
  Company Number: DSA_32262_2008

PATIENT
  Sex: Female

DRUGS (3)
  1. TAVOR /00273201/ (TAVOR - LORAZEPAM) 0.5 MG (NOT SPECIFIED)   (4 TO 5 [Suspect]
     Dosage: ( 5 MG  1X NOT THE PRESCRIBED AMOUNT ORAL)
     Route: 048
     Dates: start: 20080804, end: 20080804
  2. DOMINAL /00018902/ (DOMINAL FORTE - PROTHIPENDYL) 80 MG (NOT SPECIFIED [Suspect]
     Dosage: (80 MG 1X
 NOT THE PRESCRIBED AMOUNT ORAL)
     Route: 048
     Dates: start: 20080804, end: 20080804
  3. VALPROATE SODIUM [Suspect]
     Dosage: (6000 MG 1X  NOT THE PRESCRIBED AMOUNT ORAL)
     Route: 048
     Dates: start: 20080804, end: 20080804

REACTIONS (6)
  - AGITATION [None]
  - BLOOD CREATINE PHOSPHOKINASE INCREASED [None]
  - MULTIPLE DRUG OVERDOSE INTENTIONAL [None]
  - SOMNOLENCE [None]
  - SUICIDE ATTEMPT [None]
  - TACHYCARDIA [None]
